FAERS Safety Report 9311317 (Version 1)
Quarter: 2013Q2

REPORT INFORMATION
  Report Type: Spontaneous
  Country: US (occurrence: US)
  Receive Date: 20130528
  Receipt Date: 20130528
  Transmission Date: 20140414
  Serious: Yes (Other)
  Sender: FDA-Public Use
  Company Number: US-PFIZER INC-2013160995

PATIENT
  Age: 58 Year
  Sex: Female
  Weight: 61.68 kg

DRUGS (6)
  1. LYRICA [Suspect]
     Indication: NEURALGIA
     Dosage: 50 MG, 2X/DAY
     Route: 048
     Dates: start: 2011
  2. LYRICA [Suspect]
     Dosage: 75 MG, 2X/DAY
     Route: 048
  3. LYRICA [Suspect]
     Dosage: UNK, 2X/DAY
     Route: 048
  4. DIAZEPAM [Concomitant]
     Indication: SLEEP DISORDER
     Dosage: UNK
  5. ALPRAZOLAM [Concomitant]
     Dosage: UNK
  6. TEMAZEPAM [Concomitant]
     Dosage: UNK

REACTIONS (5)
  - Thyroid disorder [Unknown]
  - Blood cholesterol increased [Unknown]
  - Depression [Unknown]
  - Osteoporosis [Unknown]
  - Drug ineffective [Unknown]
